FAERS Safety Report 7134940-X (Version None)
Quarter: 2010Q4

REPORT INFORMATION
  Report Type: 
  Country: None (occurrence: None)
  Receive Date: 20101203
  Receipt Date: 20101119
  Transmission Date: 20110411
  Serious: Yes (Other)
  Sender: FDA-Public Use
  Company Number: US-ELI_LILLY_AND_COMPANY-US201010002309

PATIENT
  Sex: Female
  Weight: 69.388 kg

DRUGS (9)
  1. FORTEO [Suspect]
     Indication: OSTEOPOROSIS
     Dosage: 20 UG, DAILY (1/D)
     Dates: start: 20100920, end: 20101008
  2. TOPROL-XL [Concomitant]
     Dosage: 200 MG, DAILY (1/D)
     Route: 048
  3. NORVASC [Concomitant]
     Indication: BLOOD PRESSURE
     Dosage: 5 MG, DAILY (1/D)
     Route: 048
  4. PREDNISONE [Concomitant]
     Dosage: 2.5 MG, DAILY (1/D)
  5. QVAR 40 [Concomitant]
     Dosage: 2 D/F, 2/D
     Route: 055
  6. ALBUTEROL [Concomitant]
     Dosage: 2 D/F, AS NEEDED
     Route: 055
  7. VITAMIN D [Concomitant]
     Dosage: 50000 U, WEEKLY (1/W)
     Route: 048
  8. CALCIUM [Concomitant]
  9. OMEPRAZOLE [Concomitant]
     Dosage: 20 MG, DAILY (1/D)

REACTIONS (10)
  - ARTHRALGIA [None]
  - BURNING SENSATION [None]
  - DYSPNOEA [None]
  - FATIGUE [None]
  - GAIT DISTURBANCE [None]
  - MOVEMENT DISORDER [None]
  - MUSCULOSKELETAL STIFFNESS [None]
  - MYALGIA [None]
  - NAUSEA [None]
  - PAIN [None]
